FAERS Safety Report 4375859-7 (Version None)
Quarter: 2004Q2

REPORT INFORMATION
  Report Type: 
  Country: None (occurrence: None)
  Receive Date: 20040607
  Receipt Date: 20040524
  Transmission Date: 20050107
  Serious: Yes (Hospitalization)
  Sender: FDA-Public Use
  Company Number: FR-JNJFOC-20040505443

PATIENT
  Age: 39 Year
  Sex: Male

DRUGS (3)
  1. TRAMADOL HCL [Suspect]
     Dosage: 12 G, 1 IN 1 TOTAL, ORAL
     Route: 048
     Dates: start: 20040502, end: 20040502
  2. XANAX [Suspect]
     Indication: DRUG USE FOR UNKNOWN INDICATION
     Dosage: ORAL
     Route: 048
  3. ACTISKENAN (MORPHINE SULFATE) [Suspect]
     Indication: DRUG USE FOR UNKNOWN INDICATION

REACTIONS (9)
  - DRUG INTERACTION [None]
  - HYPERHIDROSIS [None]
  - HYPOGLYCAEMIA [None]
  - INTENTIONAL OVERDOSE [None]
  - SINUS TACHYCARDIA [None]
  - SUICIDE ATTEMPT [None]
  - TREMOR [None]
  - URINARY RETENTION [None]
  - VOMITING [None]
